FAERS Safety Report 11447029 (Version 1)
Quarter: 2015Q3

REPORT INFORMATION
  Report Type: Spontaneous
  Country: US (occurrence: US)
  Receive Date: 20150831
  Receipt Date: 20150831
  Transmission Date: 20151125
  Serious: No
  Sender: FDA-Public Use
  Company Number: US-ELI_LILLY_AND_COMPANY-US200902001400

PATIENT
  Age: 73 Year
  Sex: Male

DRUGS (2)
  1. CYMBALTA [Suspect]
     Active Substance: DULOXETINE HYDROCHLORIDE
     Indication: PHANTOM PAIN
     Dosage: 90 MG, DAILY (1/D)
     Dates: start: 20090119
  2. LYRICA [Concomitant]
     Active Substance: PREGABALIN
     Dates: start: 20090119

REACTIONS (3)
  - Visual impairment [Unknown]
  - Blood pressure decreased [Unknown]
  - Somnolence [Unknown]
